FAERS Safety Report 9304550 (Version 1)
Quarter: 2013Q2

REPORT INFORMATION
  Report Type: Spontaneous
  Country: US (occurrence: US)
  Receive Date: 20130523
  Receipt Date: 20130523
  Transmission Date: 20140414
  Serious: No
  Sender: FDA-Public Use
  Company Number: US-009507513-1305USA011040

PATIENT
  Sex: Male

DRUGS (1)
  1. CLARINEX-D-12 [Suspect]
     Indication: ADVERSE EVENT
     Dosage: 2.5MG/120MG, TWICE DAILY
     Route: 048
     Dates: end: 201304

REACTIONS (2)
  - Drug ineffective [Unknown]
  - No adverse event [Unknown]
